FAERS Safety Report 25524108 (Version 1)
Quarter: 2025Q3

REPORT INFORMATION
  Report Type: Spontaneous
  Country: US (occurrence: None)
  Receive Date: 20250703
  Receipt Date: 20250703
  Transmission Date: 20251021
  Serious: Yes (Death)
  Sender: FDA-CTU
  Company Number: None

PATIENT
  Age: 74 Year
  Sex: Female
  Weight: 83.7 kg

DRUGS (13)
  1. REVLIMID [Suspect]
     Active Substance: LENALIDOMIDE
     Indication: Plasma cell myeloma
     Dosage: FREQUENCY : DAILY;?
     Route: 048
     Dates: start: 20250612, end: 20250619
  2. atorvastatin 10 mg tablet [Concomitant]
  3. DEXAMETHASONE [Concomitant]
     Active Substance: DEXAMETHASONE
  4. levocetirizine 5 mg tablet [Concomitant]
  5. levothyroxine 75 mcg tablet [Concomitant]
  6. metoprolol tartrate 50 mg tablet [Concomitant]
  7. MONTELUKAST SODIUM [Concomitant]
     Active Substance: MONTELUKAST SODIUM
  8. niacin 500 mg tablet [Concomitant]
  9. ondansetron 8 mg disintegrating tablet [Concomitant]
  10. oxycodone 5 mg capsule [Concomitant]
  11. tramadol 50 mg tablet [Concomitant]
  12. VENLAFAXINE [Concomitant]
     Active Substance: VENLAFAXINE HYDROCHLORIDE
  13. XARELTO [Concomitant]
     Active Substance: RIVAROXABAN

REACTIONS (1)
  - Death [None]

NARRATIVE: CASE EVENT DATE: 20250619
